FAERS Safety Report 25546174 (Version 1)
Quarter: 2025Q3

REPORT INFORMATION
  Report Type: Spontaneous
  Country: EU (occurrence: EU)
  Receive Date: 20250713
  Receipt Date: 20250713
  Transmission Date: 20251020
  Serious: Yes (Life-Threatening, Hospitalization, Disabling, Other)
  Sender: Unknown Manufacturer
  Company Number: None

PATIENT
  Age: 77 Year
  Sex: Female
  Weight: 65 kg

DRUGS (3)
  1. QUETIAPINE FUMARATE [Suspect]
     Active Substance: QUETIAPINE FUMARATE
     Indication: Psychotic disorder
     Dosage: 25 MG, ONCE PER DAY
     Route: 048
     Dates: start: 20170301
  2. VALPROIC ACID [Concomitant]
     Active Substance: VALPROIC ACID
     Indication: Product used for unknown indication
     Route: 065
  3. CITALOPRAM [Concomitant]
     Active Substance: CITALOPRAM
     Indication: Product used for unknown indication
     Route: 048

REACTIONS (2)
  - Transient ischaemic attack [Recovered/Resolved]
  - Cerebral infarction [Recovered/Resolved]
